FAERS Safety Report 9343284 (Version 1)
Quarter: 2013Q2

REPORT INFORMATION
  Report Type: Spontaneous
  Country: US (occurrence: US)
  Receive Date: 20130612
  Receipt Date: 20130612
  Transmission Date: 20140414
  Serious: No
  Sender: FDA-Public Use
  Company Number: US-009507513-1305USA016658

PATIENT
  Age: 55 Year
  Sex: Male
  Weight: 158.73 kg

DRUGS (2)
  1. DR. SCHOLLS CLEAR AWAY WART REMOVER ONE STEP [Suspect]
     Indication: SKIN PAPILLOMA
     Dosage: 1 DF, ONCE
     Route: 061
     Dates: start: 20130519, end: 20130520
  2. SIMVASTATIN [Concomitant]
     Indication: HYPERLIPIDAEMIA
     Dosage: 20 MG, QD

REACTIONS (1)
  - Application site discolouration [Recovering/Resolving]
